FAERS Safety Report 8123782-4 (Version None)
Quarter: 2012Q1

REPORT INFORMATION
  Report Type: 
  Country: None (occurrence: None)
  Receive Date: 20120208
  Receipt Date: 20120203
  Transmission Date: 20120608
  Serious: Yes (Hospitalization)
  Sender: FDA-Public Use
  Company Number: IT-B.I. PHARMACEUTICALS,INC./RIDGEFIELD-2012-IT-00032IT

PATIENT
  Sex: Female

DRUGS (11)
  1. NALOXONE [Suspect]
     Indication: RADICULOPATHY
     Dosage: STRENGHT: 10 MG + 5 MG; DAILY DOSE: 2 POSOLOGIC UNITS
     Route: 048
     Dates: start: 20110201, end: 20110711
  2. COUMADIN [Concomitant]
     Indication: ATRIAL FIBRILLATION
  3. ESOPRAL [Concomitant]
  4. CLONAZEPAM [Suspect]
     Dosage: 15 ANZ
     Route: 048
     Dates: start: 20060117, end: 20110711
  5. FUROSEMIDE [Concomitant]
  6. NEBIVOLOL HCL [Concomitant]
  7. TOPAMAX [Suspect]
     Dosage: ONE POSOLOGIC UNIT
     Route: 048
     Dates: start: 20110201, end: 20110711
  8. LEVOTHYROXINE SODIUM [Concomitant]
     Indication: HYPOTHYROIDISM
  9. DULOXETINE HYDROCHLORIDE [Suspect]
     Dosage: 60 MG
     Route: 048
     Dates: start: 20110201, end: 20110711
  10. PRAMIPEXOLE DIHYDROCHLORIDE [Suspect]
     Indication: RESTLESS LEGS SYNDROME
     Dosage: 0.54 MG
     Route: 048
     Dates: start: 20070429, end: 20110716
  11. ZOLOFT [Suspect]
     Indication: DEPRESSION
     Dosage: ONE POSOLOGIC UNIT
     Route: 048
     Dates: start: 20110201, end: 20110711

REACTIONS (3)
  - BRADYKINESIA [None]
  - BRADYPHRENIA [None]
  - CONFUSIONAL STATE [None]
